FAERS Safety Report 17135893 (Version 1)
Quarter: 2019Q4

REPORT INFORMATION
  Report Type: Spontaneous
  Country: US (occurrence: US)
  Receive Date: 20191210
  Receipt Date: 20191210
  Transmission Date: 20200122
  Serious: No
  Sender: FDA-Public Use
  Company Number: US-OSMOTICA_PHARMACEUTICAL_US_LLC-POI0573201900425

PATIENT
  Age: 66 Year
  Sex: Female
  Weight: 47.67 kg

DRUGS (20)
  1. BOTOX [Concomitant]
     Active Substance: ONABOTULINUMTOXINA
     Indication: OROMANDIBULAR DYSTONIA
     Route: 030
  2. SUMATRIPTAN. [Concomitant]
     Active Substance: SUMATRIPTAN
     Indication: MIGRAINE
  3. CYMBALTA [Concomitant]
     Active Substance: DULOXETINE HYDROCHLORIDE
     Indication: PRODUCT USED FOR UNKNOWN INDICATION
  4. JINTELI [Concomitant]
     Active Substance: ETHINYL ESTRADIOL\NORETHINDRONE ACETATE
     Indication: PRODUCT USED FOR UNKNOWN INDICATION
     Dosage: 1MG 5MCG
  5. APLENZIN [Concomitant]
     Active Substance: BUPROPION HYDROBROMIDE
     Indication: PRODUCT USED FOR UNKNOWN INDICATION
  6. OSMOLEX ER [Suspect]
     Active Substance: AMANTADINE
     Indication: TARDIVE DYSKINESIA
     Dates: start: 201907, end: 20190908
  7. OSMOLEX ER [Suspect]
     Active Substance: AMANTADINE
     Dates: start: 20190909, end: 20190913
  8. FREMANEZUMAB-VFRM [Concomitant]
     Active Substance: FREMANEZUMAB-VFRM
     Dosage: 225MG/1.5ML
     Route: 058
  9. PREMARIN [Concomitant]
     Active Substance: ESTROGENS, CONJUGATED
     Indication: PRODUCT USED FOR UNKNOWN INDICATION
     Route: 067
  10. BUTALBITAL WITH ASPIRIN AND CAFFEINE [Concomitant]
     Indication: PRODUCT USED FOR UNKNOWN INDICATION
     Dosage: 50MG 325MG 40MG
  11. IBANDRONATE [Concomitant]
     Active Substance: IBANDRONATE SODIUM
     Indication: PRODUCT USED FOR UNKNOWN INDICATION
  12. VICODIN [Concomitant]
     Active Substance: ACETAMINOPHEN\HYDROCODONE BITARTRATE
     Indication: PRODUCT USED FOR UNKNOWN INDICATION
     Dosage: 5MG 300MG
  13. OSMOLEX ER [Suspect]
     Active Substance: AMANTADINE
     Dates: start: 20190923, end: 201910
  14. CYANOCOBALAMIN. [Concomitant]
     Active Substance: CYANOCOBALAMIN
     Indication: PRODUCT USED FOR UNKNOWN INDICATION
     Route: 060
  15. TRAVATAN Z [Concomitant]
     Active Substance: TRAVOPROST
     Indication: PRODUCT USED FOR UNKNOWN INDICATION
  16. LOSARTAN. [Concomitant]
     Active Substance: LOSARTAN
     Indication: PRODUCT USED FOR UNKNOWN INDICATION
  17. HYDROCODONE [Concomitant]
     Active Substance: HYDROCODONE
     Indication: PRODUCT USED FOR UNKNOWN INDICATION
  18. AMBIEN [Concomitant]
     Active Substance: ZOLPIDEM TARTRATE
     Indication: PRODUCT USED FOR UNKNOWN INDICATION
  19. OSMOLEX ER [Suspect]
     Active Substance: AMANTADINE
     Dates: start: 201910, end: 20191016
  20. LANSOPRAZOLE. [Concomitant]
     Active Substance: LANSOPRAZOLE
     Indication: PRODUCT USED FOR UNKNOWN INDICATION

REACTIONS (7)
  - Joint swelling [Recovered/Resolved]
  - Swelling face [Recovered/Resolved]
  - Chapped lips [Recovered/Resolved]
  - Erythema [Recovered/Resolved]
  - Drug ineffective [Recovered/Resolved]
  - Dry throat [Recovered/Resolved]
  - Dry mouth [Recovered/Resolved]

NARRATIVE: CASE EVENT DATE: 201907
